FAERS Safety Report 17159259 (Version 1)
Quarter: 2019Q4

REPORT INFORMATION
  Report Type: Spontaneous
  Country: US (occurrence: US)
  Receive Date: 20191215
  Receipt Date: 20191215
  Transmission Date: 20200122
  Serious: Yes (Hospitalization)
  Sender: FDA-Public Use
  Company Number: None

PATIENT
  Age: 88 Year
  Sex: Female
  Weight: 88 kg

DRUGS (11)
  1. LORATADINE 10MG DAILY [Concomitant]
  2. SOLIFENACIN 10MG DAILY [Concomitant]
  3. ALENDRONATE 70MG WEEKLY [Concomitant]
  4. FUROSEMIDE 40MG DIALY [Concomitant]
  5. DOCUSATE 100MG BID [Concomitant]
  6. ISOSORBIDE MONONITRATE 30MG DAILY [Concomitant]
  7. ATENOLOL 50MG DAILY [Concomitant]
  8. ASPIRIN. [Suspect]
     Active Substance: ASPIRIN
     Route: 048
     Dates: start: 20160126
  9. HYDROCHLOROTHIAZIDE 50MG DAILY [Concomitant]
  10. SIMVASTATIN 40MG THREE TIMES WEEKLY [Concomitant]
  11. RIVAROXABAN [Suspect]
     Active Substance: RIVAROXABAN
     Indication: ATRIAL FIBRILLATION
     Route: 048
     Dates: start: 20150515

REACTIONS (1)
  - Gastrointestinal haemorrhage [None]

NARRATIVE: CASE EVENT DATE: 20160716
